FAERS Safety Report 8956918 (Version 3)
Quarter: 2013Q1

REPORT INFORMATION
  Report Type: Spontaneous
  Country: US (occurrence: US)
  Receive Date: 20121210
  Receipt Date: 20130325
  Transmission Date: 20140127
  Serious: Yes (Hospitalization)
  Sender: FDA-Public Use
  Company Number: US-GILEAD-2012-0065991

PATIENT
  Age: 62 Year
  Sex: Male

DRUGS (2)
  1. LETAIRIS [Suspect]
     Indication: SCLERODERMA
     Dosage: 5 MG, QD
     Route: 048
     Dates: start: 20120828
  2. LETAIRIS [Suspect]
     Indication: PULMONARY HYPERTENSION

REACTIONS (5)
  - Blood pressure decreased [Unknown]
  - Back pain [Unknown]
  - Vision blurred [Unknown]
  - Pain [Unknown]
  - Blindness [Unknown]
